FAERS Safety Report 8484420-4 (Version None)
Quarter: 2012Q3

REPORT INFORMATION
  Report Type: 
  Country: None (occurrence: None)
  Receive Date: 20120703
  Receipt Date: 20120629
  Transmission Date: 20120928
  Serious: Yes (Hospitalization, Other)
  Sender: FDA-Public Use
  Company Number: PHHY2012BR047225

PATIENT
  Sex: Female

DRUGS (1)
  1. DIOVAN HCT [Suspect]
     Indication: HYPERTENSION
     Dosage: 2 DF (80/12.5 MG), DAILY
     Route: 048
     Dates: start: 20120517

REACTIONS (2)
  - HYPERTENSION [None]
  - CARDIOVASCULAR DISORDER [None]
